FAERS Safety Report 17467105 (Version 1)
Quarter: 2020Q1

REPORT INFORMATION
  Report Type: Spontaneous
  Country: CN (occurrence: CN)
  Receive Date: 20200227
  Receipt Date: 20200227
  Transmission Date: 20200409
  Serious: Yes (Other)
  Sender: FDA-Public Use
  Company Number: CN-ROCHE-2555502

PATIENT
  Age: 60 Year
  Sex: Male

DRUGS (23)
  1. MABTHERA [Suspect]
     Active Substance: RITUXIMAB
     Indication: DIFFUSE LARGE B-CELL LYMPHOMA
     Dosage: R-CHOP REGIMEN, DAY 0
     Route: 065
     Dates: start: 20190409
  2. MABTHERA [Suspect]
     Active Substance: RITUXIMAB
     Dosage: R-CHOP REGIMEN, DAY0
     Route: 065
     Dates: start: 20190703
  3. MABTHERA [Suspect]
     Active Substance: RITUXIMAB
     Dosage: R-GMOX REGIMEN, DAY0
     Route: 065
     Dates: start: 20190925
  4. DOXORUBICIN [Concomitant]
     Active Substance: DOXORUBICIN
     Indication: DIFFUSE LARGE B-CELL LYMPHOMA
     Route: 065
     Dates: start: 20190409
  5. CYCLOPHOSPHAMIDE. [Concomitant]
     Active Substance: CYCLOPHOSPHAMIDE
     Indication: DIFFUSE LARGE B-CELL LYMPHOMA
     Dosage: R-CHOP REGIMEN, DAY1
     Route: 065
     Dates: start: 20190409
  6. VINDESINE [Concomitant]
     Active Substance: VINDESINE
     Dosage: R-CHOP REGIMEN, DAY1
     Route: 065
     Dates: start: 20190703
  7. DEXAMETHASONE. [Concomitant]
     Active Substance: DEXAMETHASONE
     Dosage: R-CHOP REGIMEN, DAY1-5
     Route: 065
     Dates: start: 20190505
  8. DOXORUBICIN [Concomitant]
     Active Substance: DOXORUBICIN
     Dosage: R-CHOP REGIMEN, DAY1
     Route: 065
     Dates: start: 20190505
  9. DOXORUBICIN [Concomitant]
     Active Substance: DOXORUBICIN
     Dosage: R-CHOP REGIMEN, DAY1
     Route: 065
     Dates: start: 20190703
  10. DEXAMETHASONE. [Concomitant]
     Active Substance: DEXAMETHASONE
     Dosage: R-CHOP REGIMEN, DAY1-5
     Route: 065
     Dates: start: 20190703
  11. VINDESINE [Concomitant]
     Active Substance: VINDESINE
     Indication: DIFFUSE LARGE B-CELL LYMPHOMA
     Dosage: R-CHOP REGIMEN, DAY1
     Route: 065
     Dates: start: 20190409
  12. LENALIDOMIDE [Concomitant]
     Active Substance: LENALIDOMIDE
     Dosage: R-GMOX REGIMEN, 21 DAYS
     Route: 065
     Dates: start: 20190925
  13. CYCLOPHOSPHAMIDE. [Concomitant]
     Active Substance: CYCLOPHOSPHAMIDE
     Dosage: R-CHOP REGIMEN, DAY1
     Route: 065
     Dates: start: 20190505
  14. VINDESINE [Concomitant]
     Active Substance: VINDESINE
     Dosage: R-CHOP REGIMEN, DAY1
     Route: 065
     Dates: start: 20190505
  15. OXALIPLATIN. [Concomitant]
     Active Substance: OXALIPLATIN
     Indication: DIFFUSE LARGE B-CELL LYMPHOMA
     Dosage: R-GMOX REGIMEN, DAY1
     Route: 065
     Dates: start: 20190822
  16. OXALIPLATIN. [Concomitant]
     Active Substance: OXALIPLATIN
     Dosage: R-GMOX REGIMEN, DAY1
     Route: 065
     Dates: start: 20190925
  17. LENALIDOMIDE [Concomitant]
     Active Substance: LENALIDOMIDE
     Indication: DIFFUSE LARGE B-CELL LYMPHOMA
     Dosage: R-GMOX REGIMEN, 21 DAYS
     Route: 065
     Dates: start: 20190822
  18. MABTHERA [Suspect]
     Active Substance: RITUXIMAB
     Dosage: R-CHOP REGIMEN, DAY0
     Route: 065
     Dates: start: 20190505
  19. GEMCITABINE. [Concomitant]
     Active Substance: GEMCITABINE
     Indication: DIFFUSE LARGE B-CELL LYMPHOMA
     Dosage: R-GMOX REGIMEN, DAY1,DAY8
     Route: 065
     Dates: start: 20190822
  20. CYCLOPHOSPHAMIDE. [Concomitant]
     Active Substance: CYCLOPHOSPHAMIDE
     Dosage: R-CHOP REGIMEN, DAY1
     Route: 065
     Dates: start: 20190703
  21. DEXAMETHASONE. [Concomitant]
     Active Substance: DEXAMETHASONE
     Indication: DIFFUSE LARGE B-CELL LYMPHOMA
     Dosage: R-CHOP REGIMEN, DAY1-5
     Route: 065
     Dates: start: 20190409
  22. MABTHERA [Suspect]
     Active Substance: RITUXIMAB
     Dosage: R-GMOX REGIMEN, DAY0
     Route: 065
     Dates: start: 20190822
  23. GEMCITABINE. [Concomitant]
     Active Substance: GEMCITABINE
     Dosage: R-GMOX REGIMEN, DAY1,DAY8
     Route: 065
     Dates: start: 20190925

REACTIONS (9)
  - Pericardial effusion [Unknown]
  - Hepatic cirrhosis [Unknown]
  - Nephrolithiasis [Unknown]
  - Pneumonitis [Unknown]
  - Benign prostatic hyperplasia [Unknown]
  - Splenomegaly [Unknown]
  - Asthenia [Unknown]
  - Emphysema [Unknown]
  - Renal cyst [Unknown]

NARRATIVE: CASE EVENT DATE: 20190804
